FAERS Safety Report 11473951 (Version 1)
Quarter: 2015Q3

REPORT INFORMATION
  Report Type: Spontaneous
  Country: US (occurrence: None)
  Receive Date: 20150908
  Receipt Date: 20150908
  Transmission Date: 20151125
  Serious: No
  Sender: FDA-Public Use
  Company Number: None

PATIENT
  Age: 51 Year
  Sex: Female
  Weight: 90.27 kg

DRUGS (3)
  1. PROPRANOLOL [Concomitant]
     Active Substance: PROPRANOLOL\PROPRANOLOL HYDROCHLORIDE
  2. CLOBETASOL OINTMENT [Concomitant]
  3. LISINOPRIL. [Suspect]
     Active Substance: LISINOPRIL
     Indication: HYPERTENSION
     Dosage: 1
     Route: 048
     Dates: start: 20150819, end: 20150904

REACTIONS (7)
  - Gastrointestinal oedema [None]
  - Uterine haemorrhage [None]
  - Cough [None]
  - Vulvovaginal pain [None]
  - Pain [None]
  - Dizziness [None]
  - Bladder pain [None]

NARRATIVE: CASE EVENT DATE: 20150904
